FAERS Safety Report 5211743-4 (Version None)
Quarter: 2007Q1

REPORT INFORMATION
  Report Type: 
  Country: None (occurrence: None)
  Receive Date: 20070116
  Receipt Date: 20061228
  Transmission Date: 20070707
  Serious: Yes (Other)
  Sender: FDA-Public Use
  Company Number: 2007000042

PATIENT
  Sex: Female

DRUGS (1)
  1. MACUGEN [Suspect]
     Dosage: UNK, INTRA-VITREAL

REACTIONS (3)
  - DIZZINESS [None]
  - FALL [None]
  - VISUAL ACUITY REDUCED [None]
